FAERS Safety Report 19441386 (Version 1)
Quarter: 2021Q2

REPORT INFORMATION
  Report Type: Spontaneous
  Country: US (occurrence: US)
  Receive Date: 20210617
  Receipt Date: 20210617
  Transmission Date: 20210717
  Serious: Yes (Disabling)
  Sender: FDA-Public Use
  Company Number: None

PATIENT
  Age: 59 Year
  Sex: Female
  Weight: 101.61 kg

DRUGS (14)
  1. VERAPAMIL [Concomitant]
     Active Substance: VERAPAMIL HYDROCHLORIDE
  2. CELEXA [Concomitant]
     Active Substance: CITALOPRAM HYDROBROMIDE
  3. PRILOSEC [Concomitant]
     Active Substance: OMEPRAZOLE MAGNESIUM
  4. BREO ELLIPTA [Concomitant]
     Active Substance: FLUTICASONE FUROATE\VILANTEROL TRIFENATATE
  5. ELIQUIS [Concomitant]
     Active Substance: APIXABAN
  6. ALBUTEROL. [Concomitant]
     Active Substance: ALBUTEROL
  7. CALCIUM [Concomitant]
     Active Substance: CALCIUM
  8. FERROUS SULFATE. [Concomitant]
     Active Substance: FERROUS SULFATE
  9. SINGULAIR [Concomitant]
     Active Substance: MONTELUKAST SODIUM
  10. VITAMIN D [Concomitant]
     Active Substance: VITAMIN D NOS
  11. AMIODARONE [Suspect]
     Active Substance: AMIODARONE
  12. BUMEX [Concomitant]
     Active Substance: BUMETANIDE
  13. POTASSIUM CHLORIDE. [Concomitant]
     Active Substance: POTASSIUM CHLORIDE
  14. DREAM STATION [DEVICE] [Suspect]
     Active Substance: DEVICE

REACTIONS (8)
  - Atrial fibrillation [None]
  - Cardioversion [None]
  - Diastolic dysfunction [None]
  - Hyperthyroidism [None]
  - Recalled product [None]
  - Asthma [None]
  - Pulmonary hypertension [None]
  - Continuous positive airway pressure [None]

NARRATIVE: CASE EVENT DATE: 20180815
